FAERS Safety Report 7584925-4 (Version None)
Quarter: 2011Q2

REPORT INFORMATION
  Report Type: 
  Country: None (occurrence: None)
  Receive Date: 20110630
  Receipt Date: 20080829
  Transmission Date: 20111010
  Serious: Yes (Other)
  Sender: FDA-Public Use
  Company Number: US-BAYER-200816115NA

PATIENT
  Age: 62 Year
  Sex: Female
  Weight: 45.351 kg

DRUGS (21)
  1. CALCITRIOL [Concomitant]
     Indication: BLOOD CALCIUM DECREASED
     Dosage: 0.25MCG/DAILY
  2. METOPROLOL TARTRATE [Concomitant]
     Indication: BLOOD PRESSURE ABNORMAL
     Dosage: 75MG/TWICE DAILY
  3. ACETYLSALICYLIC ACID SRT [Concomitant]
     Indication: THROMBOSIS PROPHYLAXIS
     Dosage: 81MG/DAILY
  4. PROTONIX [Concomitant]
     Indication: PROPHYLAXIS AGAINST GASTROINTESTINAL ULCER
     Dosage: 40MG/DAILY
  5. FOSAMAX [Concomitant]
     Indication: OSTEOPOROSIS
     Dosage: 70MG/WEEKLY
     Route: 048
     Dates: start: 20020805
  6. EFFEXOR [Concomitant]
     Indication: ELEVATED MOOD
     Dosage: 50MG/DAILY
     Route: 048
     Dates: start: 20020218
  7. MAGNEVIST [Suspect]
     Indication: NUCLEAR MAGNETIC RESONANCE IMAGING
     Dosage: 12ML
     Dates: start: 20050922, end: 20050922
  8. CATAPRES-TTS-1 [Concomitant]
     Indication: BLOOD PRESSURE ABNORMAL
     Dosage: 0.3MG
     Route: 062
  9. PREDNISONE [Concomitant]
     Indication: IMMUNOSUPPRESSANT DRUG THERAPY
     Dosage: 5MG/DAILY
  10. LIPITOR [Concomitant]
     Indication: BLOOD CHOLESTEROL DECREASED
     Dosage: 10MG/DAILY
     Route: 048
     Dates: start: 20000701
  11. COZAAR [Concomitant]
     Indication: BLOOD PRESSURE ABNORMAL
     Dosage: 50MG/DAILY
     Route: 048
     Dates: start: 20051118
  12. EPOGEN [Concomitant]
     Indication: ANAEMIA
     Dosage: UNK
     Dates: start: 20060101
  13. PROGRAF [Concomitant]
     Indication: IMMUNOSUPPRESSANT DRUG THERAPY
     Dosage: 1MG IN THE MORNING AND 3MG AT NIGHT
  14. MYFORTIC [Concomitant]
     Indication: IMMUNOSUPPRESSANT DRUG THERAPY
     Dosage: 180MG/TWICE A DAY
  15. OMNISCAN [Suspect]
     Indication: NUCLEAR MAGNETIC RESONANCE IMAGING
     Dosage: 30ML
     Dates: start: 20060113, end: 20060113
  16. OMNISCAN [Suspect]
     Dosage: 30ML
     Dates: start: 20060130, end: 20060130
  17. DOXAZOSIN MESYLATE [Concomitant]
     Dosage: 8MG
  18. FERROUS SULFATE TAB [Concomitant]
     Indication: MINERAL SUPPLEMENTATION
  19. MULTI-VITAMIN [Concomitant]
     Indication: VITAMIN SUPPLEMENTATION
     Dosage: 1 DAILY
  20. NEPHROCAPS [Concomitant]
     Dosage: UNK
     Dates: start: 20000101
  21. VENOFER [Concomitant]
     Indication: MINERAL SUPPLEMENTATION
     Dosage: UNK
     Dates: start: 20060101

REACTIONS (15)
  - MENTAL DISORDER [None]
  - JOINT STIFFNESS [None]
  - INJURY [None]
  - PAIN OF SKIN [None]
  - SKIN INDURATION [None]
  - NEPHROGENIC SYSTEMIC FIBROSIS [None]
  - SCAR [None]
  - HYPERAESTHESIA [None]
  - DEPRESSION [None]
  - PAIN [None]
  - SKIN DISCOLOURATION [None]
  - SKIN HYPERTROPHY [None]
  - ANXIETY [None]
  - ANHEDONIA [None]
  - EMOTIONAL DISTRESS [None]
